FAERS Safety Report 8622965-4 (Version None)
Quarter: 2012Q3

REPORT INFORMATION
  Report Type: 
  Country: None (occurrence: None)
  Receive Date: 20120827
  Receipt Date: 20120823
  Transmission Date: 20120928
  Serious: Yes (Death, Other)
  Sender: FDA-Public Use
  Company Number: PHHY2011MX098850

PATIENT
  Sex: Male

DRUGS (1)
  1. EXELON [Suspect]
     Indication: DEMENTIA ALZHEIMER'S TYPE
     Dosage: 4.6 MG/ 5CM2 (1 PATCH DAILY)
     Route: 062
     Dates: start: 20110912

REACTIONS (3)
  - LUNG DISORDER [None]
  - RESPIRATORY ARREST [None]
  - ASTHENIA [None]
